FAERS Safety Report 6442359-X (Version None)
Quarter: 2009Q4

REPORT INFORMATION
  Report Type: 
  Country: None (occurrence: None)
  Receive Date: 20091112
  Receipt Date: 20091026
  Transmission Date: 20100525
  Serious: Yes (Other)
  Sender: FDA-Public Use
  Company Number: UF#:62750-2009-0019

PATIENT
  Age: 77 Year
  Sex: Female
  Weight: 63.5036 kg

DRUGS (2)
  1. ZICAM COLD REMEDY NASAL GEL SWABS [Suspect]
     Indication: NASOPHARYNGITIS
     Dosage: 4X DAY
  2. LISINOPRIL [Concomitant]

REACTIONS (2)
  - HYPOACUSIS [None]
  - HYPOSMIA [None]
